FAERS Safety Report 9405339 (Version 2)
Quarter: 2013Q3

REPORT INFORMATION
  Report Type: Spontaneous
  Country: JP (occurrence: JP)
  Receive Date: 20130717
  Receipt Date: 20130828
  Transmission Date: 20140515
  Serious: No
  Sender: FDA-Public Use
  Company Number: JP-JNJFOC-20130708912

PATIENT
  Age: 54 Year
  Sex: Male

DRUGS (3)
  1. REMICADE [Suspect]
     Indication: PSORIATIC ARTHROPATHY
     Route: 042
     Dates: start: 20121214
  2. REMICADE [Suspect]
     Indication: PSORIATIC ARTHROPATHY
     Route: 042
     Dates: start: 20130513
  3. REMICADE [Suspect]
     Indication: PSORIATIC ARTHROPATHY
     Route: 042
     Dates: start: 20130710, end: 20130710

REACTIONS (2)
  - Chest X-ray abnormal [Recovered/Resolved]
  - Cell marker increased [Not Recovered/Not Resolved]
